FAERS Safety Report 9377066 (Version 1)
Quarter: 2013Q3

REPORT INFORMATION
  Report Type: Spontaneous
  Country: US (occurrence: US)
  Receive Date: 20130701
  Receipt Date: 20130701
  Transmission Date: 20140515
  Serious: No
  Sender: FDA-Public Use
  Company Number: US-BAYER-2013-077624

PATIENT
  Age: 38 Year
  Sex: Female

DRUGS (2)
  1. GADAVIST [Suspect]
     Indication: NUCLEAR MAGNETIC RESONANCE IMAGING BRAIN
     Dosage: 2 ML/SEC , ONCE
     Dates: start: 20130621, end: 20130621
  2. GADAVIST [Suspect]
     Indication: CEREBRAL HYPOPERFUSION

REACTIONS (3)
  - Chest discomfort [None]
  - Nausea [None]
  - Vomiting [None]
